FAERS Safety Report 8619522 (Version 2)
Quarter: 2012Q4

REPORT INFORMATION
  Report Type: 
  Country: US (occurrence: US)
  Receive Date: 20120618
  Receipt Date: 20121017
  Transmission Date: 20130627
  Serious: No
  Sender: FDA-Public Use
  Company Number: US-ASTRAZENECA-2011SE63741

PATIENT
  Age: 66 Year
  Sex: Female

DRUGS (5)
  1. ATACAND [Suspect]
     Route: 048
     Dates: start: 2011
  2. ATACAND [Suspect]
     Route: 048
     Dates: start: 201202
  3. ATACAND [Suspect]
     Route: 048
  4. ATACAND HCT [Suspect]
     Route: 048
     Dates: start: 2011
  5. ATACAND HCT [Suspect]
     Dosage: 16+12.5 MG ONE TABLET PER DAY
     Route: 048

REACTIONS (5)
  - Hypotension [Unknown]
  - Dementia [Unknown]
  - Dementia Alzheimer^s type [Unknown]
  - Adverse event [Unknown]
  - Intentional drug misuse [Unknown]
